FAERS Safety Report 4764742-0 (Version None)
Quarter: 2005Q3

REPORT INFORMATION
  Report Type: 
  Country: None (occurrence: None)
  Receive Date: 20050907
  Receipt Date: 20050826
  Transmission Date: 20060218
  Serious: Yes (Death)
  Sender: FDA-Public Use
  Company Number: 2005112237

PATIENT
  Age: 72 Year
  Sex: Male

DRUGS (20)
  1. VFEND [Suspect]
     Indication: PULMONARY MYCOSIS
     Dosage: 400 MG (200 MG, BID), ORAL
     Route: 048
     Dates: start: 20050713, end: 20050725
  2. CYTOTEC (MISOPROSTOL) (MISOPROSTOL) [Concomitant]
  3. CLARITH (CLARITHROMYCIN) (CLARITHROMYCIN) [Concomitant]
  4. MUCODYNE (CARBOCYSTEINE) (CARBOCISTEINE) [Concomitant]
  5. MUCOSOLVAN (AMBROXOL HYDROCHLORIDE) (AMBROXOL HYDROCHLORIDE) [Concomitant]
  6. SELBEX (TEPRENONE) (TEPRENONE) [Concomitant]
  7. PREDONINE (PREDNISOLONE) (PREDNISOLONE) [Concomitant]
  8. MEDICON (DEXTROMETHORPHAN HYDROBROMIDE) (DEXTROMETHORPHAN HYDROBROMIDE [Concomitant]
  9. LAC B (BIFIDOBACTERIUM) (LACTOBACILLUS BIFUDUS, LYOPHILIZED) [Concomitant]
  10. AMOBAN (ZOPICLONE) (ZOPICLONE) [Concomitant]
  11. LOXONIN (LOXOPROFEN SODIUM) (LOXOPROFEN SODIUM) [Concomitant]
  12. SOLIOTA T NO.3 (MAINTENANCE MEDIUM) (POTASSIUM CHLORIDE SODIUM CHLORID [Concomitant]
  13. VITAMEDIN (THIAMINE MONOPHOSPHATE DISULFIDE/B6/B12 COMBINED DRUG (BENF [Concomitant]
  14. SODIUM CHLORIDE 0.9% [Concomitant]
  15. GASTER (FAMOTIDINE) (FAMOTIDINE) [Concomitant]
  16. 50% GLUCOSE (GLUCOSE) [Concomitant]
  17. MULTAMIN (MULTIPLE VITAMIN FOR TOTAL PARENTERAL NUTRITION) (ASCORBIC A [Concomitant]
  18. AMIZET B (AMINO ACIDS NOS) [Concomitant]
  19. HUMULIN R (HUMAN INSULIN (GENETICAL RECOMBINATION) ) (INSULIN HUMAN) [Concomitant]
  20. LASIX [Concomitant]

REACTIONS (4)
  - ALANINE AMINOTRANSFERASE INCREASED [None]
  - ASPARTATE AMINOTRANSFERASE INCREASED [None]
  - GENERAL PHYSICAL CONDITION ABNORMAL [None]
  - RESPIRATORY FAILURE [None]
